FAERS Safety Report 17089303 (Version 1)
Quarter: 2019Q4

REPORT INFORMATION
  Report Type: Spontaneous
  Country: SE (occurrence: SE)
  Receive Date: 20191128
  Receipt Date: 20191128
  Transmission Date: 20200122
  Serious: Yes (Other)
  Sender: FDA-Public Use
  Company Number: NVSC2019SE044377

PATIENT
  Age: 76 Year
  Sex: Female

DRUGS (3)
  1. FELODIPINE. [Suspect]
     Active Substance: FELODIPINE
     Indication: HYPERTENSION
     Dosage: 2.5 MG, QD (1+0+0)
     Route: 048
     Dates: start: 201802, end: 20190830
  2. METOPROLOL. [Suspect]
     Active Substance: METOPROLOL
     Indication: HYPERTENSION
     Dosage: 50 MG, QD (1+0+0)
     Route: 048
     Dates: start: 2011, end: 201802
  3. LOSARSTAD COMP [Suspect]
     Active Substance: HYDROCHLOROTHIAZIDE\LOSARTAN POTASSIUM
     Indication: HYPERTENSION
     Dosage: 1 DF, QD (1+0+0)
     Route: 048
     Dates: start: 2011, end: 20190913

REACTIONS (3)
  - Rash [Recovered/Resolved with Sequelae]
  - Pruritus [Recovered/Resolved with Sequelae]
  - Alopecia [Recovered/Resolved with Sequelae]

NARRATIVE: CASE EVENT DATE: 2012
